FAERS Safety Report 11148235 (Version 7)
Quarter: 2016Q3

REPORT INFORMATION
  Report Type: Report from Study
  Country: FR (occurrence: FR)
  Receive Date: 20150529
  Receipt Date: 20160726
  Transmission Date: 20161109
  Serious: Yes (Death, Hospitalization)
  Sender: FDA-Public Use
  Company Number: FR-ROCHE-1548652

PATIENT
  Age: 62 Year
  Sex: Female
  Weight: 110 kg

DRUGS (9)
  1. MELAXOSE [Concomitant]
     Active Substance: LACTULOSE\PARAFFIN
     Route: 065
     Dates: start: 201410
  2. TRASTUZUMAB EMTANSINE [Suspect]
     Active Substance: ADO-TRASTUZUMAB EMTANSINE
     Indication: HER-2 POSITIVE BREAST CANCER
     Dosage: 3.6, MOST RECENT DOSE PRIOR TO SERIOUS ADVERSE EVENT WAS ADMINISTERED ON 12/FEB/2015
     Route: 042
     Dates: start: 20140630, end: 20150402
  3. TOPALGIC (FRANCE) [Concomitant]
     Active Substance: TRAMADOL
     Route: 065
     Dates: start: 201407
  4. KEPPRA [Concomitant]
     Active Substance: LEVETIRACETAM
  5. TRAMADOL. [Concomitant]
     Active Substance: TRAMADOL
     Route: 065
  6. LANTUS [Concomitant]
     Active Substance: INSULIN GLARGINE
     Dosage: DAILY DOSE 18 UNIT.
     Route: 065
  7. LYTOS [Concomitant]
     Active Substance: CLODRONATE DISODIUM
     Route: 065
     Dates: start: 2014
  8. ALDACTAZINE [Concomitant]
     Active Substance: ALTHIAZIDE\SPIRONOLACTONE
  9. PARACETAMOL [Concomitant]
     Active Substance: ACETAMINOPHEN

REACTIONS (1)
  - Brain oedema [Fatal]

NARRATIVE: CASE EVENT DATE: 20150227
